FAERS Safety Report 23295328 (Version 1)
Quarter: 2023Q4

REPORT INFORMATION
  Report Type: Spontaneous
  Country: US (occurrence: US)
  Receive Date: 20231214
  Receipt Date: 20231214
  Transmission Date: 20240110
  Serious: No
  Sender: FDA-Public Use
  Company Number: US-ENDO PHARMACEUTICALS INC-2023-001222

PATIENT
  Sex: Male
  Weight: 93.878 kg

DRUGS (4)
  1. XIAFLEX [Suspect]
     Active Substance: COLLAGENASE CLOSTRIDIUM HISTOLYTICUM
     Indication: Peyronie^s disease
     Dosage: UNK UNKNOWN, UNKNOWN (CYCLE ONE, INJECTION ONE)
     Route: 051
     Dates: start: 2022
  2. XIAFLEX [Suspect]
     Active Substance: COLLAGENASE CLOSTRIDIUM HISTOLYTICUM
     Dosage: UNK UNKNOWN, UNKNOWN (CYCLE ONE, INJECTION TWO)
     Route: 051
     Dates: start: 2022
  3. PRESSURIL [Concomitant]
     Indication: Product used for unknown indication
     Dosage: 5 MG, OD (IN AM)
     Route: 065
  4. Plavistatin [Concomitant]
     Indication: Product used for unknown indication
     Dosage: 10 MG, OD
     Route: 065

REACTIONS (1)
  - Drug ineffective [Unknown]
